FAERS Safety Report 25184421 (Version 2)
Quarter: 2025Q2

REPORT INFORMATION
  Report Type: Spontaneous
  Country: FR (occurrence: FR)
  Receive Date: 20250410
  Receipt Date: 20250425
  Transmission Date: 20250717
  Serious: Yes (Hospitalization)
  Sender: PFIZER
  Company Number: None

PATIENT
  Age: 68 Year
  Sex: Male
  Weight: 97.1 kg

DRUGS (9)
  1. PIPERACILLIN SODIUM\TAZOBACTAM SODIUM [Suspect]
     Active Substance: PIPERACILLIN SODIUM\TAZOBACTAM SODIUM
     Indication: Staphylococcal bacteraemia
     Dosage: 4G AND IN BOLUS 12G/24H
     Dates: start: 20250108, end: 20250114
  2. CLINDAMYCIN PHOSPHATE [Suspect]
     Active Substance: CLINDAMYCIN PHOSPHATE
     Indication: Staphylococcal bacteraemia
     Route: 048
     Dates: start: 20250108, end: 20250114
  3. CEFAZOLIN [Suspect]
     Active Substance: CEFAZOLIN
     Indication: Staphylococcal bacteraemia
     Dosage: 8 G, 1X/DAY
     Route: 042
     Dates: start: 20250109, end: 20250128
  4. CEFAZOLIN [Suspect]
     Active Substance: CEFAZOLIN
     Dosage: 12 G, 1X/DAY
     Route: 042
     Dates: start: 20250128, end: 20250213
  5. GENTAMICIN [Suspect]
     Active Substance: GENTAMICIN
     Indication: Staphylococcal bacteraemia
     Route: 042
     Dates: start: 20250108, end: 20250109
  6. BISOPROLOL FUMARATE [Concomitant]
     Active Substance: BISOPROLOL FUMARATE
     Dosage: 7.5 MG, 1X/DAY
     Route: 048
  7. CANDESARTAN EG [Concomitant]
     Dosage: 4 MG, 1X/DAY
     Route: 048
  8. DAPAGLIFLOZIN [Concomitant]
     Active Substance: DAPAGLIFLOZIN
     Dosage: 10 MG, 1X/DAY
     Route: 048
  9. SPIRONOLACTONE ALTIZIDE EG [Concomitant]
     Dosage: UNK UNK, 1X/DAY

REACTIONS (1)
  - Pancytopenia [Recovering/Resolving]

NARRATIVE: CASE EVENT DATE: 20250121
